FAERS Safety Report 23927300 (Version 1)
Quarter: 2024Q2

REPORT INFORMATION
  Report Type: Spontaneous
  Country: US (occurrence: US)
  Receive Date: 20240531
  Receipt Date: 20240531
  Transmission Date: 20240716
  Serious: No
  Sender: FDA-Public Use
  Company Number: US-009507513-2405USA001114

PATIENT
  Age: 1 Month
  Sex: Female

DRUGS (3)
  1. RECOMBIVAX HB [Suspect]
     Active Substance: HEPATITIS B VIRUS SUBTYPE ADW HBSAG SURFACE PROTEIN ANTIGEN
     Indication: Prophylaxis
  2. RECOMBIVAX HB [Suspect]
     Active Substance: HEPATITIS B VIRUS SUBTYPE ADW HBSAG SURFACE PROTEIN ANTIGEN
  3. PIFELTRO [Suspect]
     Active Substance: DORAVIRINE
     Indication: Antiretroviral therapy
     Route: 048

REACTIONS (2)
  - Incomplete course of vaccination [Unknown]
  - Product use in unapproved indication [Unknown]
